FAERS Safety Report 10070432 (Version 2)
Quarter: 2014Q2

REPORT INFORMATION
  Report Type: Spontaneous
  Country: IT (occurrence: IT)
  Receive Date: 20140410
  Receipt Date: 20140411
  Transmission Date: 20141212
  Serious: Yes (Hospitalization)
  Sender: FDA-Public Use
  Company Number: IT-ACTAVIS-2013-25261

PATIENT
  Age: 51 Year
  Sex: Female
  Weight: 48 kg

DRUGS (2)
  1. OXALIPLATIN [Suspect]
     Indication: COLON CANCER METASTATIC
     Dosage: 189.8 MG, CYCLICAL
     Route: 042
     Dates: start: 20101129, end: 20121017
  2. AVASTIN                            /01555201/ [Suspect]
     Indication: COLON CANCER METASTATIC
     Dosage: 189 MG, CYCLICAL
     Route: 042
     Dates: start: 20120926, end: 20121017

REACTIONS (1)
  - Loss of consciousness [Recovered/Resolved]
